FAERS Safety Report 13449923 (Version 1)
Quarter: 2017Q2

REPORT INFORMATION
  Report Type: Spontaneous
  Country: US (occurrence: US)
  Receive Date: 20170417
  Receipt Date: 20170417
  Transmission Date: 20170830
  Serious: No
  Sender: FDA-Public Use
  Company Number: US-BION-20160290

PATIENT
  Sex: Female
  Weight: 68.04 kg

DRUGS (2)
  1. GENERIC SYNTHROID [Concomitant]
     Active Substance: LEVOTHYROXINE SODIUM
  2. ALEVE [Suspect]
     Active Substance: NAPROXEN SODIUM
     Indication: SCIATICA
     Dosage: 2 DSF QID WITH FOOD
     Route: 048

REACTIONS (4)
  - Inappropriate schedule of drug administration [Unknown]
  - Poor quality drug administered [Unknown]
  - Product use in unapproved indication [Unknown]
  - Product physical issue [Unknown]
